FAERS Safety Report 17549961 (Version 6)
Quarter: 2022Q2

REPORT INFORMATION
  Report Type: Spontaneous
  Country: US (occurrence: US)
  Receive Date: 20200317
  Receipt Date: 20220527
  Transmission Date: 20220721
  Serious: Yes (Other)
  Sender: FDA-Public Use
  Company Number: US-PFIZER INC-2020115295

PATIENT
  Age: 77 Year
  Sex: Female

DRUGS (1)
  1. IBRANCE [Suspect]
     Active Substance: PALBOCICLIB
     Dosage: 100 MG, UNK
     Dates: start: 20220210

REACTIONS (9)
  - COVID-19 [Unknown]
  - Rhinorrhoea [Unknown]
  - Eye discharge [Unknown]
  - Fatigue [Unknown]
  - Loss of personal independence in daily activities [Unknown]
  - Upper-airway cough syndrome [Unknown]
  - Dry throat [Recovered/Resolved]
  - Feeling abnormal [Unknown]
  - Sleep disorder [Unknown]
